FAERS Safety Report 8321794-9 (Version None)
Quarter: 2012Q2

REPORT INFORMATION
  Report Type: 
  Country: None (occurrence: None)
  Receive Date: 20120430
  Receipt Date: 20120423
  Transmission Date: 20120825
  Serious: Yes (Hospitalization)
  Sender: FDA-Public Use
  Company Number: BR-ASTRAZENECA-2012SE26873

PATIENT
  Age: 81 Year
  Sex: Female

DRUGS (2)
  1. SYMBICORT [Suspect]
     Indication: BRONCHITIS
     Dosage: 160/4.9 MCG OD
     Route: 055
     Dates: end: 20120401
  2. SYMBICORT [Suspect]
     Dosage: 320/9 MCG, BID BUT PATIENT TAKING OD
     Route: 055
     Dates: start: 20120401

REACTIONS (4)
  - MYOCARDIAL INFARCTION [None]
  - DYSPNOEA [None]
  - WHEEZING [None]
  - INTENTIONAL DRUG MISUSE [None]
